FAERS Safety Report 24275479 (Version 6)
Quarter: 2025Q2

REPORT INFORMATION
  Report Type: Report from Study
  Country: CA (occurrence: CA)
  Receive Date: 20240903
  Receipt Date: 20250519
  Transmission Date: 20250717
  Serious: Yes (Other)
  Sender: JOHNSON AND JOHNSON
  Company Number: CA-JNJFOC-20240879808

PATIENT
  Age: 16 Year
  Sex: Female

DRUGS (8)
  1. REMICADE [Suspect]
     Active Substance: INFLIXIMAB
     Indication: Crohn^s disease
     Route: 041
     Dates: start: 20220824
  2. REMICADE [Suspect]
     Active Substance: INFLIXIMAB
     Dosage: EXPIRY DATE: MAR-2027
     Route: 041
     Dates: start: 20220824
  3. REMICADE [Suspect]
     Active Substance: INFLIXIMAB
     Dosage: EXPIRY DATE: MAR-2027
     Route: 041
     Dates: start: 20220824
  4. REMICADE [Suspect]
     Active Substance: INFLIXIMAB
     Dosage: EXPIRY DATE: MA-2027
     Route: 041
     Dates: start: 20220824
  5. METHOTREXATE [Concomitant]
     Active Substance: METHOTREXATE
     Indication: Product used for unknown indication
  6. FOLIC ACID [Concomitant]
     Active Substance: FOLIC ACID
     Indication: Product used for unknown indication
  7. IRON [Concomitant]
     Active Substance: IRON
     Indication: Product used for unknown indication
  8. METHOTREXATE [Concomitant]
     Active Substance: METHOTREXATE
     Indication: Product used for unknown indication

REACTIONS (6)
  - Crohn^s disease [Not Recovered/Not Resolved]
  - Asthenia [Unknown]
  - Tremor [Unknown]
  - Dizziness [Unknown]
  - General physical health deterioration [Unknown]
  - Therapeutic product effect decreased [Unknown]

NARRATIVE: CASE EVENT DATE: 20240818
